FAERS Safety Report 14634663 (Version 1)
Quarter: 2018Q1

REPORT INFORMATION
  Report Type: Spontaneous
  Country: US (occurrence: US)
  Receive Date: 20180314
  Receipt Date: 20180314
  Transmission Date: 20180509
  Serious: No
  Sender: FDA-Public Use
  Company Number: US-PFIZER INC-2018100156

PATIENT
  Age: 48 Year
  Sex: Male
  Weight: 108.9 kg

DRUGS (1)
  1. VIAGRA [Suspect]
     Active Substance: SILDENAFIL CITRATE
     Indication: ERECTILE DYSFUNCTION
     Dosage: 25 MG TABLETS, ONE TIME AT NIGHT
     Route: 048
     Dates: start: 201712

REACTIONS (2)
  - Ejaculation disorder [Unknown]
  - Erection increased [Unknown]

NARRATIVE: CASE EVENT DATE: 201801
